FAERS Safety Report 6053463-2 (Version None)
Quarter: 2009Q1

REPORT INFORMATION
  Report Type: 
  Country: None (occurrence: None)
  Receive Date: 20090127
  Receipt Date: 20080602
  Transmission Date: 20090719
  Serious: No
  Sender: FDA-Public Use
  Company Number: US-TEVA-171046USA

PATIENT
  Sex: Female

DRUGS (9)
  1. COPAXONE [Suspect]
     Indication: MULTIPLE SCLEROSIS
     Route: 048
     Dates: start: 20070207
  2. SERTRALINE [Concomitant]
  3. OXCARBAZEPINE [Concomitant]
     Route: 048
  4. ZOLPIDEM TARTRATE [Concomitant]
     Indication: INSOMNIA
     Route: 048
  5. BACLOFEN [Concomitant]
     Route: 048
  6. DIAZEPAM [Concomitant]
     Route: 048
  7. MODAFINIL [Concomitant]
     Indication: FATIGUE
     Route: 048
  8. PREGABALIN [Concomitant]
     Route: 048
  9. DULOXETINE HYDROCHLORIDE [Concomitant]
     Route: 048

REACTIONS (2)
  - DENTAL CARIES [None]
  - DRY MOUTH [None]
